FAERS Safety Report 10158400 (Version 3)
Quarter: 2014Q4

REPORT INFORMATION
  Report Type: Spontaneous
  Country: US (occurrence: US)
  Receive Date: 20140507
  Receipt Date: 20141202
  Transmission Date: 20150528
  Serious: No
  Sender: FDA-Public Use
  Company Number: US-009507513-1405USA002492

PATIENT
  Age: 76 Year
  Sex: Male

DRUGS (1)
  1. AFRIN [Suspect]
     Active Substance: OXYMETAZOLINE
     Indication: NASAL CONGESTION
     Dosage: UNKNOWN
     Route: 045

REACTIONS (4)
  - Insomnia [Unknown]
  - Rebound effect [Unknown]
  - Euphoric mood [Unknown]
  - Dependence [Unknown]
